FAERS Safety Report 13678219 (Version 1)
Quarter: 2017Q2

REPORT INFORMATION
  Report Type: Spontaneous
  Country: US (occurrence: US)
  Receive Date: 20170621
  Receipt Date: 20170621
  Transmission Date: 20170830
  Serious: Yes (Other)
  Sender: FDA-Public Use
  Company Number: None

PATIENT
  Age: 56 Year
  Sex: Male
  Weight: 86.5 kg

DRUGS (2)
  1. GADOBENATE DIMEGLUMINE [Suspect]
     Active Substance: GADOBENATE DIMEGLUMINE
     Indication: SCAN WITH CONTRAST
     Dosage: ?          OTHER FREQUENCY:ONCE;?
     Route: 042
  2. GADOBENATE DIMEGLUMINE [Suspect]
     Active Substance: GADOBENATE DIMEGLUMINE
     Indication: NUCLEAR MAGNETIC RESONANCE IMAGING
     Dosage: ?          OTHER FREQUENCY:ONCE;?
     Route: 042

REACTIONS (3)
  - Nausea [None]
  - Oxygen saturation decreased [None]
  - Haematemesis [None]

NARRATIVE: CASE EVENT DATE: 20170502
